FAERS Safety Report 5691771-5 (Version None)
Quarter: 2008Q2

REPORT INFORMATION
  Report Type: 
  Country: None (occurrence: None)
  Receive Date: 20080402
  Receipt Date: 20080327
  Transmission Date: 20081010
  Serious: Yes (Life-Threatening)
  Sender: FDA-Public Use
  Company Number: CH-BRISTOL-MYERS SQUIBB COMPANY-14095178

PATIENT
  Age: 66 Year
  Sex: Male

DRUGS (5)
  1. CETUXIMAB [Suspect]
     Indication: OESOPHAGEAL ADENOCARCINOMA
     Route: 042
     Dates: start: 20080212, end: 20080212
  2. CISPLATIN [Suspect]
     Indication: OESOPHAGEAL ADENOCARCINOMA
     Route: 042
     Dates: start: 20080212, end: 20080212
  3. DOCETAXEL [Suspect]
     Indication: OESOPHAGEAL ADENOCARCINOMA
     Route: 042
     Dates: start: 20080212, end: 20080212
  4. RADIATION THERAPY [Suspect]
     Indication: OESOPHAGEAL ADENOCARCINOMA
  5. NEBIVOLOL HCL [Concomitant]
     Route: 048

REACTIONS (6)
  - DIARRHOEA [None]
  - ENTERITIS [None]
  - FEBRILE NEUTROPENIA [None]
  - GASTROINTESTINAL PAIN [None]
  - LEUKOPENIA [None]
  - THROMBOCYTOPENIA [None]
